FAERS Safety Report 8676052 (Version 6)
Quarter: 2013Q2

REPORT INFORMATION
  Report Type: Spontaneous
  Country: US (occurrence: US)
  Receive Date: 20120720
  Receipt Date: 20130508
  Transmission Date: 20140414
  Serious: Yes (Other)
  Sender: FDA-Public Use
  Company Number: US-ASTRAZENECA-2012SE47776

PATIENT
  Age: 64 Year
  Sex: Female

DRUGS (3)
  1. ARIMIDEX [Suspect]
     Indication: BREAST CANCER
     Route: 048
  2. ATACAND [Suspect]
     Route: 048
     Dates: start: 2003
  3. ATACAND HCT [Suspect]
     Route: 048

REACTIONS (6)
  - Breast cancer female [Unknown]
  - Hypertension [Unknown]
  - Headache [Unknown]
  - Visual impairment [Unknown]
  - Epistaxis [Unknown]
  - Drug dose omission [Unknown]
